FAERS Safety Report 5080965-8 (Version None)
Quarter: 2006Q3

REPORT INFORMATION
  Report Type: 
  Country: None (occurrence: None)
  Receive Date: 20060810
  Receipt Date: 20060726
  Transmission Date: 20061208
  Serious: Yes (Other)
  Sender: FDA-Public Use
  Company Number: S06-SWI-03122-01

PATIENT
  Age: 56 Year
  Sex: Female

DRUGS (7)
  1. ESCITALOPRAM OXALATE [Suspect]
     Indication: DEPRESSION
     Dosage: 20 MG QD PO
     Route: 048
     Dates: start: 20060609, end: 20060627
  2. ESCITALOPRAM OXALATE [Suspect]
     Indication: PANIC ATTACK
     Dosage: 20 MG QD PO
     Route: 048
     Dates: start: 20060609, end: 20060627
  3. ESCITALOPRAM OXALATE [Suspect]
     Indication: DEPRESSION
     Dosage: 10 MG QD PO
     Route: 048
     Dates: start: 20060627
  4. ESCITALOPRAM OXALATE [Suspect]
     Indication: PANIC ATTACK
     Dosage: 10 MG QD PO
     Route: 048
     Dates: start: 20060627
  5. REMERON [Suspect]
  6. LORAZEPAM [Concomitant]
  7. TRAZODONE HCL [Concomitant]

REACTIONS (4)
  - DRUG INTERACTION [None]
  - DYSKINESIA [None]
  - SEROTONIN SYNDROME [None]
  - TENSION [None]
